FAERS Safety Report 8407289-2 (Version None)
Quarter: 2012Q2

REPORT INFORMATION
  Report Type: 
  Country: None (occurrence: None)
  Receive Date: 20120323
  Receipt Date: 20110503
  Transmission Date: 20120825
  Serious: Yes (Life-Threatening, Hospitalization)
  Sender: FDA-Public Use
  Company Number: 163-21880-11050384

PATIENT
  Age: 70 Year
  Sex: Male

DRUGS (12)
  1. AVODART [Concomitant]
  2. OXYCODONE HCL [Concomitant]
  3. CRESTOR [Concomitant]
  4. FENTANYL [Concomitant]
  5. MULTIVITAMIN [Concomitant]
  6. REVLIMID [Suspect]
     Indication: PRODUCT USED FOR UNKNOWN INDICATION
     Dosage: 15 MG, QD X21 DAYS, PO
     Route: 048
  7. THERAFLU (THERAPLU) [Concomitant]
  8. ACYCLOVIR [Concomitant]
  9. CITRACAL + D (CITRACAL +D) [Concomitant]
  10. COD LIVER (COD LIVER) [Concomitant]
  11. PRILOSEC [Concomitant]
  12. WELLBUTRIN [Concomitant]

REACTIONS (1)
  - PNEUMONIA [None]
